FAERS Safety Report 15433379 (Version 1)
Quarter: 2018Q3

REPORT INFORMATION
  Report Type: Spontaneous
  Country: KR (occurrence: KR)
  Receive Date: 20180927
  Receipt Date: 20180927
  Transmission Date: 20181010
  Serious: Yes (Other)
  Sender: FDA-Public Use
  Company Number: KR-SUN PHARMACEUTICAL INDUSTRIES LTD-2018RR-185447

PATIENT
  Sex: Female

DRUGS (1)
  1. CARBOPLATIN. [Suspect]
     Active Substance: CARBOPLATIN
     Indication: CERVIX CARCINOMA
     Dosage: MONOTHERAPY FOR 2 CYCLES UNTIL 30 WEEKS OF GESTATION
     Route: 065

REACTIONS (3)
  - Pre-eclampsia [Unknown]
  - Premature delivery [Unknown]
  - Exposure during pregnancy [Unknown]
